FAERS Safety Report 15073143 (Version 4)
Quarter: 2018Q4

REPORT INFORMATION
  Report Type: Spontaneous
  Country: DE (occurrence: DE)
  Receive Date: 20180627
  Receipt Date: 20181101
  Transmission Date: 20190204
  Serious: Yes (Hospitalization, Other)
  Sender: FDA-Public Use
  Company Number: DE-BIOGEN-2018BI00600850

PATIENT
  Age: 34 Year
  Sex: Male
  Weight: 80 kg

DRUGS (5)
  1. ZYPREXA [Concomitant]
     Active Substance: OLANZAPINE
     Indication: ORGANIC BRAIN SYNDROME
     Dosage: AT NIGHT
     Route: 065
  2. TYSABRI [Suspect]
     Active Substance: NATALIZUMAB
     Indication: MULTIPLE SCLEROSIS
     Route: 042
     Dates: start: 20180309, end: 20180508
  3. LEPONEX [Suspect]
     Active Substance: CLOZAPINE
     Indication: SCHIZOPHRENIA
     Route: 065
  4. OLANZAPINE. [Concomitant]
     Active Substance: OLANZAPINE
     Indication: PRODUCT USED FOR UNKNOWN INDICATION
     Route: 065
  5. RISPERDAL [Concomitant]
     Active Substance: RISPERIDONE
     Indication: ORGANIC BRAIN SYNDROME
     Dosage: IN THE MORNING
     Route: 065

REACTIONS (5)
  - Meningitis bacterial [Recovered/Resolved]
  - Subarachnoid haemorrhage [Not Recovered/Not Resolved]
  - Skull fractured base [Not Recovered/Not Resolved]
  - Fall [Recovered/Resolved]
  - Agranulocytosis [Recovered/Resolved]

NARRATIVE: CASE EVENT DATE: 201805
